FAERS Safety Report 4812418-3 (Version None)
Quarter: 2005Q4

REPORT INFORMATION
  Report Type: 
  Country: None (occurrence: None)
  Receive Date: 20051028
  Receipt Date: 20050126
  Transmission Date: 20060501
  Serious: No
  Sender: FDA-Public Use
  Company Number: US-GLAXOSMITHKLINE-A0542472A

PATIENT
  Age: 71 Year
  Sex: Female
  Weight: 57.3 kg

DRUGS (7)
  1. ADVAIR DISKUS 100/50 [Suspect]
     Indication: INFECTION
     Dosage: 1PUFF TWICE PER DAY
     Route: 055
     Dates: start: 20050112
  2. LEVAQUIN [Concomitant]
  3. PREDNISONE [Concomitant]
  4. PHENERGAN [Concomitant]
  5. STELAZINE [Concomitant]
  6. FOSAMAX [Concomitant]
  7. THEOPHYLLINE [Concomitant]

REACTIONS (1)
  - OVERDOSE [None]
